FAERS Safety Report 9639473 (Version 2)
Quarter: 2013Q4

REPORT INFORMATION
  Report Type: Spontaneous
  Country: JP (occurrence: JP)
  Receive Date: 20131023
  Receipt Date: 20131023
  Transmission Date: 20140711
  Serious: Yes (Hospitalization)
  Sender: FDA-Public Use
  Company Number: JP-KOWA-2013S1001539

PATIENT
  Age: 66 Year
  Sex: Female
  Weight: 51 kg

DRUGS (4)
  1. LIVALO [Suspect]
     Indication: LIPIDS ABNORMAL
     Route: 048
     Dates: start: 20130426, end: 20130614
  2. HERBS (UNSPECIFIED INGREDIENT) [Interacting]
     Indication: ABDOMINAL DISTENSION
     Route: 048
     Dates: start: 20121124, end: 20130614
  3. GASMOTIN [Concomitant]
     Indication: GASTRITIS
     Route: 048
     Dates: start: 20121124, end: 20130614
  4. MUCOSTA [Concomitant]
     Indication: GASTRITIS
     Route: 048
     Dates: start: 20121124, end: 20130614

REACTIONS (2)
  - Drug-induced liver injury [Recovering/Resolving]
  - Drug interaction [Recovering/Resolving]
